FAERS Safety Report 6575255-8 (Version None)
Quarter: 2010Q1

REPORT INFORMATION
  Report Type: 
  Country: None (occurrence: None)
  Receive Date: 20100202
  Receipt Date: 20100125
  Transmission Date: 20100710
  Serious: Yes (Hospitalization)
  Sender: FDA-Public Use
  Company Number: 2010000440

PATIENT
  Sex: Female

DRUGS (1)
  1. NUVIGIL [Suspect]
     Dosage: ORAL
     Route: 048

REACTIONS (2)
  - NECROTISING FASCIITIS [None]
  - STEVENS-JOHNSON SYNDROME [None]
